FAERS Safety Report 20889772 (Version 2)
Quarter: 2022Q2

REPORT INFORMATION
  Report Type: Report from Study
  Country: IT (occurrence: IT)
  Receive Date: 20220530
  Receipt Date: 20220620
  Transmission Date: 20220721
  Serious: Yes (Hospitalization, Other)
  Sender: FDA-Public Use
  Company Number: IT-CELLTRION INC.-2022IT007452

PATIENT

DRUGS (19)
  1. RITUXIMAB [Suspect]
     Active Substance: RITUXIMAB
     Indication: Diffuse large B-cell lymphoma
     Dosage: 829 MG/M2, EVERY 3 WEEKS (MOST RECENT DOSE OF RITUXIMAB WAS ADMIN ON 17/AUG/2020 AT 11:49 AM WHICH E
     Route: 042
     Dates: start: 20200506
  2. RITUXIMAB [Suspect]
     Active Substance: RITUXIMAB
     Indication: Non-Hodgkin^s lymphoma
  3. VINCRISTINE [Suspect]
     Active Substance: VINCRISTINE
     Indication: Diffuse large B-cell lymphoma
     Dosage: 2 MG/M2, EVERY 3 WEEKS (TOTAL VOLUME 50 ML MOST RECENT DOSE OF VINCRISTINE WAS ADMIN ON 17/AUG/2020
     Route: 042
     Dates: start: 20200416
  4. VINCRISTINE [Suspect]
     Active Substance: VINCRISTINE
     Indication: Non-Hodgkin^s lymphoma
  5. PREDNISONE [Suspect]
     Active Substance: PREDNISONE
     Indication: Non-Hodgkin^s lymphoma
     Dosage: 100 MG (MOST RECENT DOSE OF PREDNISONE WAS ADMIN ON 21/AUG/2020 PRIOR TO AE/SAE.)
     Route: 048
     Dates: start: 20200417
  6. PREDNISONE [Suspect]
     Active Substance: PREDNISONE
     Indication: Diffuse large B-cell lymphoma
  7. METHYLPREDNISOLONE [Suspect]
     Active Substance: METHYLPREDNISOLONE
     Indication: Non-Hodgkin^s lymphoma
     Dosage: 100 MG (MOST RECENT DOSE OF METHYLPREDNISOLONE WAS ADMIN ON 17/AUG/2020 (80 MG) PRIOR TO AE/SAE)
     Route: 048
     Dates: start: 20200416
  8. METHYLPREDNISOLONE [Suspect]
     Active Substance: METHYLPREDNISOLONE
     Indication: Diffuse large B-cell lymphoma
  9. CYCLOPHOSPHAMIDE [Suspect]
     Active Substance: CYCLOPHOSPHAMIDE
     Indication: Non-Hodgkin^s lymphoma
     Dosage: 1350 MG/M2, EVERY 3 WEEKS (TOTAL VOLUME 100 ML MOST RECENT DOSE OF CYCLOPHOSPHAMIDE WAS ADMIN ON 17/
     Route: 042
     Dates: start: 20200416
  10. CYCLOPHOSPHAMIDE [Suspect]
     Active Substance: CYCLOPHOSPHAMIDE
     Indication: Diffuse large B-cell lymphoma
  11. DOXORUBICIN [Suspect]
     Active Substance: DOXORUBICIN
     Indication: Non-Hodgkin^s lymphoma
     Dosage: 90 MG/M2, EVERY 3 WEEKS (MOST RECENT DOSE OF DOXORUBICIN WAS ADMIN ON 17/AUG/2020 AT 03:20 TO 03:25
     Route: 042
     Dates: start: 20200416
  12. DOXORUBICIN [Suspect]
     Active Substance: DOXORUBICIN
     Indication: Diffuse large B-cell lymphoma
  13. OBINUTUZUMAB [Suspect]
     Active Substance: OBINUTUZUMAB
     Indication: Diffuse large B-cell lymphoma
     Dosage: 1000 MG (MOST RECENT DOSE OF OBINUTUZUMAB WAS ADMIN ON 16/APR/2020 AT 09:29 AM WHICH ENDED ON 02:14
     Route: 042
     Dates: start: 20200416
  14. OBINUTUZUMAB [Suspect]
     Active Substance: OBINUTUZUMAB
     Indication: Non-Hodgkin^s lymphoma
     Dosage: UNK
  15. BACTRIM [Concomitant]
     Active Substance: SULFAMETHOXAZOLE\TRIMETHOPRIM
     Dosage: UNK
     Dates: start: 20200331
  16. GLOFITAMAB [Concomitant]
     Active Substance: GLOFITAMAB
     Indication: Non-Hodgkin^s lymphoma
     Dosage: 2.5 MG, EVERY 3 WEEKS (MOST RECENT DOSE OF GLOFITAMAB WAS ADMIN ON 27/OCT/2021 AT 12:33 PM PRIOR TO
     Route: 042
     Dates: start: 20200513
  17. GLOFITAMAB [Concomitant]
     Active Substance: GLOFITAMAB
     Indication: Diffuse large B-cell lymphoma
  18. ACYCLOVIR [Concomitant]
     Active Substance: ACYCLOVIR
     Dosage: UNK
     Dates: start: 20200331
  19. OMEPRAZOLE [Concomitant]
     Active Substance: OMEPRAZOLE
     Dosage: UNK
     Dates: start: 20210111

REACTIONS (4)
  - COVID-19 pneumonia [Recovered/Resolved]
  - COVID-19 pneumonia [Not Recovered/Not Resolved]
  - Overdose [Unknown]
  - Off label use [Unknown]

NARRATIVE: CASE EVENT DATE: 20220119
